FAERS Safety Report 6095082-8 (Version None)
Quarter: 2009Q1

REPORT INFORMATION
  Report Type: 
  Country: None (occurrence: None)
  Receive Date: 20090227
  Receipt Date: 20080214
  Transmission Date: 20090719
  Serious: No
  Sender: FDA-Public Use
  Company Number: A0703353A

PATIENT
  Age: 40 Year
  Sex: Male
  Weight: 95.5 kg

DRUGS (4)
  1. LAMICTAL [Suspect]
     Indication: DRUG USE FOR UNKNOWN INDICATION
     Dosage: 25MG PER DAY
     Route: 048
     Dates: start: 20080108, end: 20080111
  2. KLONOPIN [Concomitant]
     Dosage: 1.5G TWICE PER DAY
  3. AMBIEN [Concomitant]
     Dosage: 10MG AT NIGHT
  4. EFFEXOR XR [Concomitant]
     Dosage: 450U IN THE MORNING

REACTIONS (1)
  - RASH [None]
